FAERS Safety Report 19160566 (Version 1)
Quarter: 2021Q2

REPORT INFORMATION
  Report Type: Spontaneous
  Country: US (occurrence: US)
  Receive Date: 20210420
  Receipt Date: 20210420
  Transmission Date: 20210717
  Serious: Yes (Life-Threatening, Hospitalization, Other)
  Sender: FDA-Public Use
  Company Number: US-ASTRAZENECA-2021A324652

PATIENT
  Age: 20362 Day
  Sex: Female
  Weight: 79.4 kg

DRUGS (9)
  1. VITAMIN D3 [Concomitant]
     Active Substance: CHOLECALCIFEROL
  2. CINNAMON. [Concomitant]
     Active Substance: CINNAMON
  3. TURMERIC [Concomitant]
     Active Substance: HERBALS\TURMERIC
  4. BYDUREON [Suspect]
     Active Substance: EXENATIDE
     Indication: TYPE 2 DIABETES MELLITUS
     Route: 058
     Dates: start: 2017, end: 20200423
  5. MULTI VITAMIN [Concomitant]
     Active Substance: VITAMINS
  6. MAGNESIUM CITRATE. [Concomitant]
     Active Substance: MAGNESIUM CITRATE
  7. PROBIOTIC [Concomitant]
     Active Substance: PROBIOTICS NOS
  8. FISH OIL [Concomitant]
     Active Substance: FISH OIL
  9. VITAMIN C [Concomitant]
     Active Substance: ASCORBIC ACID

REACTIONS (2)
  - Fournier^s gangrene [Recovered/Resolved]
  - Necrotising fasciitis [Recovered/Resolved]

NARRATIVE: CASE EVENT DATE: 20200418
